FAERS Safety Report 6244503-6 (Version None)
Quarter: 2009Q2

REPORT INFORMATION
  Report Type: 
  Country: None (occurrence: None)
  Receive Date: 20090625
  Receipt Date: 20090622
  Transmission Date: 20091009
  Serious: Yes (Other)
  Sender: FDA-Public Use
  Company Number: US-JNJFOC-20060906208

PATIENT
  Sex: Female

DRUGS (3)
  1. RISPERDAL [Suspect]
     Indication: POST-TRAUMATIC STRESS DISORDER
  2. SEROQUEL [Suspect]
     Indication: POST-TRAUMATIC STRESS DISORDER
  3. ZOLOFT [Concomitant]
     Indication: DEPRESSION

REACTIONS (1)
  - TYPE 2 DIABETES MELLITUS [None]
